FAERS Safety Report 4583453-8 (Version None)
Quarter: 2005Q1

REPORT INFORMATION
  Report Type: 
  Country: None (occurrence: None)
  Receive Date: 20050211
  Receipt Date: 20050202
  Transmission Date: 20050727
  Serious: No
  Sender: FDA-Public Use
  Company Number: 2005017731

PATIENT
  Age: 57 Year
  Sex: Male

DRUGS (4)
  1. AMLODIPINE [Suspect]
     Indication: HYPERTENSION
     Dosage: 1 DF (5 MG,1 IN 1 D), ORAL
     Route: 048
  2. ATENOLOL [Suspect]
     Indication: HYPERTENSION
     Dosage: 1 DF (1 IN 1 D), ORAL
     Route: 048
  3. PRAZOSIN HCL [Suspect]
     Indication: HYPERTENSION
     Dosage: 0.5 MG, ORAL
     Route: 048
  4. DEXTROMETHORPHAN HYDROBROMIDE [Concomitant]

REACTIONS (2)
  - ENZYME INHIBITION [None]
  - METABOLIC DISORDER [None]
